FAERS Safety Report 8530277-2 (Version None)
Quarter: 2012Q3

REPORT INFORMATION
  Report Type: 
  Country: None (occurrence: None)
  Receive Date: 20120723
  Receipt Date: 20120716
  Transmission Date: 20120928
  Serious: Yes (Hospitalization, Other)
  Sender: FDA-Public Use
  Company Number: US-JNJFOC-20100805652

PATIENT
  Sex: Female

DRUGS (1)
  1. LEVAQUIN [Suspect]
     Indication: ILL-DEFINED DISORDER
     Route: 048
     Dates: start: 20040101, end: 20040101

REACTIONS (8)
  - TENDON DISORDER [None]
  - TENDON RUPTURE [None]
  - ANXIETY [None]
  - PERIARTHRITIS [None]
  - CARPAL TUNNEL SYNDROME [None]
  - BIPOLAR DISORDER [None]
  - TENDONITIS [None]
  - SCHIZOPHRENIA [None]
